FAERS Safety Report 5279852-1 (Version None)
Quarter: 2007Q1

REPORT INFORMATION
  Report Type: 
  Country: None (occurrence: None)
  Receive Date: 20061218
  Receipt Date: 20060606
  Transmission Date: 20070707
  Serious: Yes (Hospitalization)
  Sender: FDA-Public Use
  Company Number: US200606001764

PATIENT
  Sex: Female

DRUGS (2)
  1. HUMULIN R [Suspect]
     Indication: GESTATIONAL DIABETES
     Dosage: 6 U, EACH MORNING
     Dates: start: 20060602
  2. HUMULIN N [Suspect]
     Indication: GESTATIONAL DIABETES
     Dosage: 8 U, EACH EVENING
     Dates: start: 20060602

REACTIONS (3)
  - BLOOD GLUCOSE ABNORMAL [None]
  - DRUG EXPOSURE DURING PREGNANCY [None]
  - PRURITUS GENERALISED [None]
